FAERS Safety Report 23481098 (Version 2)
Quarter: 2024Q1

REPORT INFORMATION
  Report Type: Spontaneous
  Country: SG (occurrence: SG)
  Receive Date: 20240205
  Receipt Date: 20240311
  Transmission Date: 20240410
  Serious: Yes (Other)
  Sender: FDA-Public Use
  Company Number: SG-BAYER-2024A015993

PATIENT

DRUGS (2)
  1. FINERENONE [Suspect]
     Active Substance: FINERENONE
     Dosage: UNK
     Dates: start: 202301, end: 202401
  2. LOSARTAN [Concomitant]
     Active Substance: LOSARTAN

REACTIONS (1)
  - Blood creatinine increased [Recovering/Resolving]

NARRATIVE: CASE EVENT DATE: 20230101
